FAERS Safety Report 21707237 (Version 1)
Quarter: 2022Q4

REPORT INFORMATION
  Report Type: Spontaneous
  Country: US (occurrence: US)
  Receive Date: 20221209
  Receipt Date: 20221209
  Transmission Date: 20230112
  Serious: No
  Sender: FDA-Public Use
  Company Number: US-BRISTOL-MYERS SQUIBB COMPANY-2022-150712

PATIENT
  Age: 52 Year
  Sex: Female

DRUGS (2)
  1. ORENCIA [Suspect]
     Active Substance: ABATACEPT
     Indication: Rheumatoid arthritis
     Dosage: FREQUENCY: INFUSE 750 MG INTRAVENOUSLY AT WEEK 0, 2, 4, THEN EVERY 4 WEEKS THEREAFTER
     Route: 042
     Dates: start: 202012
  2. ORENCIA [Suspect]
     Active Substance: ABATACEPT
     Indication: Idiopathic urticaria

REACTIONS (4)
  - Fatigue [Unknown]
  - Muscular weakness [Unknown]
  - Mental status changes [Unknown]
  - Nonspecific reaction [Unknown]
